FAERS Safety Report 8728280 (Version 2)
Quarter: 2012Q4

REPORT INFORMATION
  Report Type: 
  Country: CO (occurrence: CO)
  Receive Date: 20120817
  Receipt Date: 20120912
  Transmission Date: 20130627
  Serious: Yes (Hospitalization)
  Sender: FDA-Public Use
  Company Number: CO-ELI_LILLY_AND_COMPANY-CO201208004083

PATIENT
  Age: 55 Year
  Sex: Female

DRUGS (3)
  1. ZYPREXA [Suspect]
     Indication: BIPOLAR DISORDER
     Dosage: 5 mg, qd
     Dates: start: 201207
  2. ZYPREXA [Suspect]
     Dosage: 10 mg, qd
  3. VALCOTE [Concomitant]
     Dosage: 1000 mg, UNK

REACTIONS (3)
  - Metabolic syndrome [Recovered/Resolved]
  - Oedema peripheral [Recovered/Resolved]
  - Cushing^s syndrome [Recovered/Resolved]
